FAERS Safety Report 19645866 (Version 1)
Quarter: 2021Q3

REPORT INFORMATION
  Report Type: Report from Study
  Country: US (occurrence: US)
  Receive Date: 20210802
  Receipt Date: 20210802
  Transmission Date: 20211014
  Serious: Yes (Hospitalization, Other)
  Sender: FDA-Public Use
  Company Number: US-SHIRE-US201705609

PATIENT
  Age: 58 Year
  Sex: Female
  Weight: 61 kg

DRUGS (25)
  1. TEDUGLUTIDE [Suspect]
     Active Substance: TEDUGLUTIDE
     Indication: SHORT-BOWEL SYNDROME
     Dosage: 2.49 MILLIGRAM (0.05 MG KG TED DAILY DOSE, 7 TED DOSAGE PER WEEK)
     Route: 065
     Dates: start: 20160927, end: 20160930
  2. TEDUGLUTIDE [Suspect]
     Active Substance: TEDUGLUTIDE
     Dosage: 2.5 MILLIGRAM (0.05 MG KG TED DAILY DOSE, 7 TED DOSAGE PER WEEK)
     Route: 065
     Dates: start: 20170315, end: 20170808
  3. LOPERAMIDE [Concomitant]
     Active Substance: LOPERAMIDE
     Indication: ENTEROCUTANEOUS FISTULA
     Dosage: 4 MILLIGRAM, QID
     Route: 048
     Dates: start: 20171113, end: 20171119
  4. TEDUGLUTIDE [Suspect]
     Active Substance: TEDUGLUTIDE
     Dosage: 2.5 MILLIGRAM (0.04 MG KG TED DAILY DOSE, 7 TED DOSAGE PER WEEK)
     Route: 065
     Dates: start: 20161018, end: 20161031
  5. TEDUGLUTIDE [Suspect]
     Active Substance: TEDUGLUTIDE
     Dosage: 2.49 MILLIGRAM  (0.05 MG KG TED DAILY DOSE, 7 TED DOSAGE PER WEEK)
     Route: 065
     Dates: start: 20170310, end: 20170314
  6. TEDUGLUTIDE [Suspect]
     Active Substance: TEDUGLUTIDE
     Dosage: 2.5 MILLIGRAM (0.05 MG KG TED DAILY DOSE, 7 TED DOSAGE PER WEEK)
     Route: 065
     Dates: start: 20170315, end: 20170808
  7. DIPHENOXYLATE/ATROPINE [Concomitant]
     Active Substance: ATROPINE\DIPHENOXYLATE
     Indication: ENTEROCUTANEOUS FISTULA
     Dosage: 1 DOSAGE FORM, QID
     Route: 048
     Dates: start: 20171113, end: 20171119
  8. TEDUGLUTIDE [Suspect]
     Active Substance: TEDUGLUTIDE
     Indication: SHORT-BOWEL SYNDROME
     Dosage: 2.49 MILLIGRAM (0.05 MG KG TED DAILY DOSE, 7 TED DOSAGE PER WEEK)
     Route: 065
     Dates: start: 20160927, end: 20160930
  9. TEDUGLUTIDE [Suspect]
     Active Substance: TEDUGLUTIDE
     Indication: SHORT-BOWEL SYNDROME
     Dosage: 2.49 MILLIGRAM (0.05 MG KG TED DAILY DOSE, 7 TED DOSAGE PER WEEK)
     Route: 065
     Dates: start: 20160927, end: 20160930
  10. TEDUGLUTIDE [Suspect]
     Active Substance: TEDUGLUTIDE
     Dosage: 2.5 MILLIGRAM (0.04 MG KG TED DAILY DOSE, 7 TED DOSAGE PER WEEK)
     Route: 065
     Dates: start: 20161018, end: 20161031
  11. TEDUGLUTIDE [Suspect]
     Active Substance: TEDUGLUTIDE
     Indication: SHORT-BOWEL SYNDROME
     Dosage: 2.49 MILLIGRAM (0.05 MG KG TED DAILY DOSE, 7 TED DOSAGE PER WEEK)
     Route: 065
     Dates: start: 20160927, end: 20160930
  12. TEDUGLUTIDE [Suspect]
     Active Substance: TEDUGLUTIDE
     Dosage: 2.5 MILLIGRAM (0.04 MG KG TED DAILY DOSE, 7 TED DOSAGE PER WEEK)
     Route: 065
     Dates: start: 20161018, end: 20161031
  13. TEDUGLUTIDE [Suspect]
     Active Substance: TEDUGLUTIDE
     Dosage: 2.49 MILLIGRAM  (0.05 MG KG TED DAILY DOSE, 7 TED DOSAGE PER WEEK)
     Route: 065
     Dates: start: 20170310, end: 20170314
  14. TEDUGLUTIDE [Suspect]
     Active Substance: TEDUGLUTIDE
     Dosage: 2.5 MILLIGRAM (0.05 MG KG TED DAILY DOSE, 7 TED DOSAGE PER WEEK)
     Route: 065
     Dates: start: 20170315, end: 20170808
  15. TEDUGLUTIDE [Suspect]
     Active Substance: TEDUGLUTIDE
     Dosage: 2.5 MILLIGRAM (0.05 MG KG TED DAILY DOSE, 7 TED DOSAGE PER WEEK)
     Route: 065
     Dates: start: 20170315, end: 20170808
  16. VANCOMYCIN [Concomitant]
     Active Substance: VANCOMYCIN
     Indication: INFECTION
     Dosage: UNK
     Route: 065
  17. MIDODRINE [Concomitant]
     Active Substance: MIDODRINE
     Indication: HYPOTENSION
     Dosage: 7.50 MILLIGRAM, TID
     Route: 048
     Dates: start: 20161023, end: 20161025
  18. TEDUGLUTIDE [Suspect]
     Active Substance: TEDUGLUTIDE
     Dosage: 2.5 MILLIGRAM (0.04 MG KG TED DAILY DOSE, 7 TED DOSAGE PER WEEK)
     Route: 065
     Dates: start: 20161018, end: 20161031
  19. TEDUGLUTIDE [Suspect]
     Active Substance: TEDUGLUTIDE
     Dosage: 5 MILLIGRAM (0.09 MG KG TED DAILY DOSE, 7 TED DOSAGE PER WEEK)
     Route: 065
     Dates: start: 20161116, end: 20161205
  20. TEDUGLUTIDE [Suspect]
     Active Substance: TEDUGLUTIDE
     Dosage: 2.49 MILLIGRAM  (0.05 MG KG TED DAILY DOSE, 7 TED DOSAGE PER WEEK)
     Route: 065
     Dates: start: 20170310, end: 20170314
  21. TEDUGLUTIDE [Suspect]
     Active Substance: TEDUGLUTIDE
     Dosage: 2.49 MILLIGRAM  (0.05 MG KG TED DAILY DOSE, 7 TED DOSAGE PER WEEK)
     Route: 065
     Dates: start: 20170310, end: 20170314
  22. CHOLESTYRAMINE. [Concomitant]
     Active Substance: CHOLESTYRAMINE
     Indication: ENTEROCUTANEOUS FISTULA
     Dosage: 4 GRAM, BID
     Route: 048
     Dates: start: 20171106, end: 20171119
  23. TEDUGLUTIDE [Suspect]
     Active Substance: TEDUGLUTIDE
     Dosage: 5 MILLIGRAM (0.09 MG KG TED DAILY DOSE, 7 TED DOSAGE PER WEEK)
     Route: 065
     Dates: start: 20161116, end: 20161205
  24. TEDUGLUTIDE [Suspect]
     Active Substance: TEDUGLUTIDE
     Dosage: 5 MILLIGRAM (0.09 MG KG TED DAILY DOSE, 7 TED DOSAGE PER WEEK)
     Route: 065
     Dates: start: 20161116, end: 20161205
  25. TEDUGLUTIDE [Suspect]
     Active Substance: TEDUGLUTIDE
     Dosage: 5 MILLIGRAM (0.09 MG KG TED DAILY DOSE, 7 TED DOSAGE PER WEEK)
     Route: 065
     Dates: start: 20161116, end: 20161205

REACTIONS (2)
  - Product use in unapproved indication [Unknown]
  - Sepsis [Recovered/Resolved]

NARRATIVE: CASE EVENT DATE: 201609
